FAERS Safety Report 8122788 (Version 2)
Quarter: 2012Q4

REPORT INFORMATION
  Report Type: Report from Study
  Country: FR (occurrence: FR)
  Receive Date: 20110906
  Receipt Date: 20120917
  Transmission Date: 20130627
  Serious: Yes (Hospitalization)
  Sender: FDA-Public Use
  Company Number: FR-PFIZER INC-2011197317

PATIENT
  Age: 64 Year
  Sex: Male
  Weight: 103 kg

DRUGS (4)
  1. SUNITINIB MALATE [Suspect]
     Indication: RENAL CANCER METASTATIC
     Dosage: 50 mg, UNK
     Route: 048
     Dates: start: 20101220
  2. CELECTOL [Concomitant]
     Indication: HYPERTENSION
     Dosage: 200 mg, 1x/day
     Route: 048
  3. RENITEC [Concomitant]
     Indication: HYPERTENSION
     Dosage: 5 mg, 1x/day
     Route: 048
  4. TAHOR [Concomitant]
     Indication: HYPERCHOLESTEROLAEMIA
     Dosage: UNK
     Route: 048

REACTIONS (2)
  - Renal colic [Recovered/Resolved]
  - Haemorrhage urinary tract [Recovered/Resolved]
